FAERS Safety Report 8144591-6 (Version None)
Quarter: 2012Q1

REPORT INFORMATION
  Report Type: 
  Country: None (occurrence: None)
  Receive Date: 20120217
  Receipt Date: 20120203
  Transmission Date: 20120608
  Serious: Yes (Other)
  Sender: FDA-Public Use
  Company Number: US-ROCHE-1003056

PATIENT
  Sex: Female

DRUGS (1)
  1. AVASTIN [Suspect]
     Indication: COLON CANCER
     Route: 042
     Dates: start: 20091207

REACTIONS (3)
  - NERVOUS SYSTEM DISORDER [None]
  - DYSPHONIA [None]
  - VOCAL CORD PARALYSIS [None]
